FAERS Safety Report 7913968-3 (Version None)
Quarter: 2011Q4

REPORT INFORMATION
  Report Type: 
  Country: None (occurrence: None)
  Receive Date: 20111115
  Receipt Date: 20111104
  Transmission Date: 20120403
  Serious: Yes (Death, Other)
  Sender: FDA-Public Use
  Company Number: GB-NAPPMUNDI-GBR-2011-0008941

PATIENT
  Sex: Female

DRUGS (17)
  1. SIMVASTATIN [Concomitant]
     Dosage: 80 MG, NOCTE
  2. LANSOPRAZOLE [Concomitant]
     Dosage: 30 MG, BID
  3. CANDESARTAN CILEXETIL [Concomitant]
     Dosage: 16 MG, NOCTE
  4. BISACODYL [Concomitant]
     Dosage: 10 MG, NOCTE
  5. EPILIM CHRONO                      /00228502/ [Concomitant]
     Dosage: 800 MG, NOCTE
  6. AMLODIPINE [Concomitant]
     Dosage: 10 MG, NOCTE
  7. FEXOFENADINE [Concomitant]
     Dosage: 180 MG, AM
  8. DIAZEPAM [Concomitant]
     Dosage: 2 MG, AM
  9. ASPIRIN [Concomitant]
     Dosage: 75 MG, NOCTE
  10. CITALOPRAM HYDROBROMIDE [Concomitant]
     Dosage: 40 MG, NOCTE
  11. BUTRANS [Interacting]
     Indication: ARTHRALGIA
     Dosage: 10 MCG, Q1H
     Route: 062
     Dates: start: 20110324, end: 20110804
  12. MEPTAZINOL HYDROCHLORIDE [Interacting]
     Dosage: 200 MG, QID
  13. PROCYCLIDINE HYDROCHLORIDE 2MG TAB [Concomitant]
     Dosage: 5 MG, NOCTE
  14. HALOPERIDOL [Concomitant]
     Dosage: 3 MG, NOCTE
  15. NOVORAPID [Concomitant]
     Dosage: UNK
  16. BUTRANS [Suspect]
     Indication: BACK PAIN
     Dosage: 20 MCG, Q1H
     Route: 062
     Dates: start: 20110805, end: 20110817
  17. DIAZEPAM [Concomitant]
     Dosage: 4 MG, NOCTE

REACTIONS (8)
  - FEELING OF BODY TEMPERATURE CHANGE [None]
  - SOMNOLENCE [None]
  - NAUSEA [None]
  - DEATH [None]
  - DRUG INTERACTION [None]
  - FATIGUE [None]
  - DIZZINESS [None]
  - PYREXIA [None]
